FAERS Safety Report 25711300 (Version 1)
Quarter: 2025Q3

REPORT INFORMATION
  Report Type: Spontaneous
  Country: US (occurrence: US)
  Receive Date: 20250821
  Receipt Date: 20250821
  Transmission Date: 20251020
  Serious: No
  Sender: RECKITT BENCKISER
  Company Number: US-PROD-AS2-212756134-20-24-USA-RB-0014174

PATIENT
  Sex: Female

DRUGS (2)
  1. MUCINEX [Suspect]
     Active Substance: GUAIFENESIN
     Indication: Chronic obstructive pulmonary disease
     Dosage: 1.000DF QD
     Route: 048
  2. MUCINEX [Suspect]
     Active Substance: GUAIFENESIN
     Indication: Productive cough

REACTIONS (3)
  - Pollakiuria [Not Recovered/Not Resolved]
  - Dry skin [Not Recovered/Not Resolved]
  - Product use in unapproved indication [Not Recovered/Not Resolved]
